FAERS Safety Report 8422748-4 (Version None)
Quarter: 2012Q2

REPORT INFORMATION
  Report Type: 
  Country: None (occurrence: None)
  Receive Date: 20120608
  Receipt Date: 20120529
  Transmission Date: 20120825
  Serious: No
  Sender: FDA-Public Use
  Company Number: JP-BRISTOL-MYERS SQUIBB COMPANY-16593683

PATIENT
  Age: 62 Year
  Sex: Female

DRUGS (4)
  1. GLIMEPIRIDE [Concomitant]
     Indication: DIABETES MELLITUS
     Route: 048
     Dates: start: 20080918
  2. IMIDAPRIL HCL [Concomitant]
     Indication: HYPERTENSION
     Route: 048
     Dates: start: 20080918
  3. METFORMIN HCL [Suspect]
     Indication: DIABETES MELLITUS
     Dosage: JUN11 TO NOV11 (5 MONTHS) 500MG DOSE INCREASED FROM NOV11 04FEB-8MAY12 (6 MONTHS) 750MG
     Route: 048
     Dates: start: 20120204, end: 20120508
  4. SITAGLIPTIN PHOSPHATE [Concomitant]
     Indication: DIABETES MELLITUS
     Route: 048
     Dates: start: 20110117

REACTIONS (5)
  - HYPOAESTHESIA [None]
  - DRUG DOSE OMISSION [None]
  - PRURITUS GENERALISED [None]
  - PAIN [None]
  - DIZZINESS [None]
